FAERS Safety Report 5884864-0 (Version None)
Quarter: 2008Q3

REPORT INFORMATION
  Report Type: 
  Country: None (occurrence: None)
  Receive Date: 20080912
  Receipt Date: 20080903
  Transmission Date: 20090109
  Serious: Yes (Hospitalization)
  Sender: FDA-Public Use
  Company Number: WAES 0809USA00400

PATIENT
  Age: 8 Year
  Sex: Male

DRUGS (4)
  1. DECADRON [Suspect]
     Dosage: 4 MG BID PO
     Route: 048
     Dates: start: 20080714
  2. CYANOCOBALAMIN [Concomitant]
  3. ETOPOSIDE [Concomitant]
  4. STUDY DRUG (UNSPECIFIED) [Concomitant]

REACTIONS (1)
  - LYMPHOPENIA [None]
